FAERS Safety Report 18266491 (Version 10)
Quarter: 2022Q3

REPORT INFORMATION
  Report Type: Report from Study
  Country: DK (occurrence: DK)
  Receive Date: 20200915
  Receipt Date: 20220919
  Transmission Date: 20221026
  Serious: Yes (Hospitalization, Other)
  Sender: FDA-Public Use
  Company Number: DK-SA-2020SA035527

PATIENT
  Age: 12 Year
  Sex: Male
  Weight: 36 kg

DRUGS (64)
  1. ISATUXIMAB [Suspect]
     Active Substance: ISATUXIMAB
     Indication: T-cell type acute leukaemia
     Dosage: 20 MG/KG, QW
     Route: 042
     Dates: start: 20200106, end: 20200106
  2. ISATUXIMAB [Suspect]
     Active Substance: ISATUXIMAB
     Dosage: 20 MG/KG, QW
     Route: 042
     Dates: start: 20191223, end: 20191223
  3. DEXAMETHASONE [Suspect]
     Active Substance: DEXAMETHASONE
     Indication: T-cell type acute leukaemia
     Dosage: 10 MG/M2, ON DAYS 3, 2, 1, 1, 8, 15 TO 19, 22,
     Route: 065
     Dates: start: 20200102, end: 20200102
  4. DEXAMETHASONE [Suspect]
     Active Substance: DEXAMETHASONE
     Dosage: 10 MG/M2, ON DAYS 3, 2, 1, 1, 8, 15 TO 19, 22,
     Route: 065
     Dates: start: 20191220, end: 20191220
  5. MITOXANTRONE [Suspect]
     Active Substance: MITOXANTRONE HYDROCHLORIDE
     Indication: T-cell type acute leukaemia
     Dosage: 12.3 MG/M2 12.3 MG 12.3 MG/M? DAYS 8 AND 9 OF INDUCTION PERIOD
     Route: 042
  6. MITOXANTRONE [Suspect]
     Active Substance: MITOXANTRONE HYDROCHLORIDE
     Dosage: 10 MG/M2, 10 MG/M? ON DAYS 8 AND 9 OF THE
     Route: 042
     Dates: start: 20191220, end: 20191220
  7. VINCRISTINE SULFATE [Suspect]
     Active Substance: VINCRISTINE SULFATE
     Indication: T-cell type acute leukaemia
     Dosage: 1.5 MG/M2, ON DAYS 10, 17, 24, AND 31 DURING THE INDUCTION PERIOD
     Route: 042
     Dates: start: 20200102, end: 20200102
  8. VINCRISTINE SULFATE [Suspect]
     Active Substance: VINCRISTINE SULFATE
     Dosage: 1.5 MG/M2, ON DAYS 10, 17, 24, AND 31 DURING THE INDUCTION PERIOD
     Route: 042
     Dates: start: 20191220, end: 20191220
  9. METHOTREXATE [Suspect]
     Active Substance: METHOTREXATE
     Indication: T-cell type acute leukaemia
     Dosage: 1000 MG/M2, ON DAY 8 OF THE CONSOLIDATION PERIOD
     Route: 042
  10. METHOTREXATE [Suspect]
     Active Substance: METHOTREXATE
     Dosage: 1000 MG/M2, ON DAY 8 OF THE CONSOLIDATION PERIOD
     Route: 042
     Dates: start: 20191220, end: 20191220
  11. ASPARAGINASE [Suspect]
     Active Substance: ASPARAGINASE
     Indication: T-cell type acute leukaemia
     Dosage: 1000 IU/M2 ON DAYS 10 AND 24 DURING INDUCTION PERIOD
     Route: 030
     Dates: start: 20200102, end: 20200102
  12. ASPARAGINASE [Suspect]
     Active Substance: ASPARAGINASE
     Dosage: 1000 IU/M2 ON DAYS 10 AND 24 DURING INDUCTION PERIOD
     Route: 030
     Dates: start: 20191220, end: 20191220
  13. DOXORUBICIN [Suspect]
     Active Substance: DOXORUBICIN
     Indication: T-cell type acute leukaemia
     Dosage: 25 MG/M2
     Route: 042
  14. DOXORUBICIN [Suspect]
     Active Substance: DOXORUBICIN
     Dosage: 25 MG/M2
     Route: 042
     Dates: start: 20191220, end: 20191220
  15. METOPIMAZINA [Concomitant]
     Indication: Prophylaxis
     Dosage: UNK
     Route: 048
     Dates: start: 20200106, end: 20200507
  16. ACETAMINOPHEN [Concomitant]
     Active Substance: ACETAMINOPHEN
     Indication: Prophylaxis
     Dosage: 500 MG, 1X
     Route: 048
     Dates: start: 20200106, end: 20200106
  17. ACETAMINOPHEN [Concomitant]
     Active Substance: ACETAMINOPHEN
     Dosage: 500 MG, 1X
     Route: 048
     Dates: start: 20191223, end: 20191223
  18. ACETAMINOPHEN [Concomitant]
     Active Substance: ACETAMINOPHEN
     Dosage: 500 MG, 1X
     Route: 048
     Dates: start: 20191230, end: 20191230
  19. ACETAMINOPHEN [Concomitant]
     Active Substance: ACETAMINOPHEN
     Dosage: UNK
     Route: 048
     Dates: start: 20191226, end: 20191227
  20. ONDANSETRON [Concomitant]
     Active Substance: ONDANSETRON
     Indication: Prophylaxis
     Dosage: UNK
     Route: 042
     Dates: start: 20191220, end: 20191224
  21. ONDANSETRON [Concomitant]
     Active Substance: ONDANSETRON
     Dosage: UNK
     Route: 048
     Dates: start: 20191223, end: 20191227
  22. ONDANSETRON [Concomitant]
     Active Substance: ONDANSETRON
     Dosage: UNK
     Route: 042
     Dates: start: 20191230, end: 20191230
  23. ONDANSETRON [Concomitant]
     Active Substance: ONDANSETRON
     Dosage: UNK
     Route: 048
     Dates: start: 20191230, end: 20200107
  24. MORPHINE [Concomitant]
     Active Substance: MORPHINE
     Dosage: UNK
     Route: 048
     Dates: start: 20191226, end: 20191227
  25. MORPHINE [Concomitant]
     Active Substance: MORPHINE
     Dosage: UNK
     Route: 048
     Dates: start: 20191220, end: 20200214
  26. POLYETHYLENE GLYCOLS [Concomitant]
     Active Substance: POLYETHYLENE GLYCOLS
     Indication: Prophylaxis
     Dosage: UNK
     Route: 048
     Dates: start: 20191226, end: 20191227
  27. POLYETHYLENE GLYCOLS [Concomitant]
     Active Substance: POLYETHYLENE GLYCOLS
     Dosage: UNK
     Route: 048
     Dates: start: 20191230, end: 20200107
  28. CLEMASTINE FUMARATE [Concomitant]
     Active Substance: CLEMASTINE FUMARATE
     Indication: Prophylaxis
     Dosage: 0.72 MG, QD
     Route: 042
     Dates: start: 20191223, end: 20191223
  29. CLEMASTINE FUMARATE [Concomitant]
     Active Substance: CLEMASTINE FUMARATE
     Dosage: 0.72 MG, 1X
     Route: 042
     Dates: start: 20191230, end: 20191230
  30. CLEMASTINE FUMARATE [Concomitant]
     Active Substance: CLEMASTINE FUMARATE
     Dosage: 0.72 MG, 1X
     Route: 042
     Dates: start: 20200106, end: 20200106
  31. ACYCLOVIR [Concomitant]
     Active Substance: ACYCLOVIR
     Indication: Prophylaxis
     Dosage: UNK
     Route: 048
     Dates: start: 20191220, end: 20191224
  32. ACYCLOVIR [Concomitant]
     Active Substance: ACYCLOVIR
     Dosage: UNK
     Route: 048
     Dates: start: 20191227, end: 20191227
  33. ACYCLOVIR [Concomitant]
     Active Substance: ACYCLOVIR
     Dosage: UNK
     Route: 048
     Dates: start: 20191230, end: 20200107
  34. PROPOFOL [Concomitant]
     Active Substance: PROPOFOL
     Indication: Prophylaxis
     Dosage: UNK
     Route: 042
     Dates: start: 20191220, end: 20200213
  35. ALLOPURINOL [Concomitant]
     Active Substance: ALLOPURINOL
     Indication: Prophylaxis
     Dosage: UNK
     Route: 048
     Dates: start: 20191220, end: 20191224
  36. ALLOPURINOL [Concomitant]
     Active Substance: ALLOPURINOL
     Dosage: UNK
     Route: 048
     Dates: start: 20191227, end: 20200107
  37. CALCIUM [Concomitant]
     Active Substance: CALCIUM
     Indication: Prophylaxis
     Dosage: UNK
     Route: 048
     Dates: start: 20191220, end: 20200206
  38. SODIUM PICOSULFATE [Concomitant]
     Active Substance: SODIUM PICOSULFATE
     Dosage: UNK
     Route: 048
     Dates: start: 20191220, end: 20200206
  39. VORICONAZOLE [Concomitant]
     Active Substance: VORICONAZOLE
     Dosage: UNK
     Route: 048
     Dates: start: 20191220, end: 20191224
  40. BACTRIM [Concomitant]
     Active Substance: SULFAMETHOXAZOLE\TRIMETHOPRIM
     Indication: Prophylaxis
     Dosage: UNK
     Route: 048
     Dates: start: 20191221, end: 20191224
  41. ALFENTANIL [Concomitant]
     Active Substance: ALFENTANIL
     Indication: Prophylaxis
     Dosage: UNK
     Route: 048
     Dates: start: 20191227, end: 20191227
  42. CLEMASTINE [Concomitant]
     Active Substance: CLEMASTINE
     Indication: Prophylaxis
     Dosage: UNK
     Route: 040
     Dates: start: 20200121, end: 20200512
  43. SOLU-MEDROL [Concomitant]
     Active Substance: METHYLPREDNISOLONE SODIUM SUCCINATE
     Dosage: UNK
     Route: 065
     Dates: start: 20191223, end: 20191223
  44. SOLU-MEDROL [Concomitant]
     Active Substance: METHYLPREDNISOLONE SODIUM SUCCINATE
     Dosage: UNK
     Route: 065
     Dates: start: 20191227, end: 20191227
  45. CYTARABINE [Concomitant]
     Active Substance: CYTARABINE
     Dosage: UNK
     Route: 065
     Dates: start: 20200106, end: 20200106
  46. CYTARABINE [Concomitant]
     Active Substance: CYTARABINE
     Dosage: UNK
     Route: 037
     Dates: start: 20191227, end: 20191227
  47. CYTARABINE [Concomitant]
     Active Substance: CYTARABINE
     Dosage: UNK
     Dates: start: 20191223, end: 20191223
  48. METHOTREXATE [Concomitant]
     Active Substance: METHOTREXATE
     Dosage: UNK
     Route: 037
     Dates: start: 20191220, end: 20191227
  49. METHOTREXATE [Concomitant]
     Active Substance: METHOTREXATE
     Dosage: UNK
     Route: 065
     Dates: start: 20191223, end: 20191223
  50. METHOTREXATE [Concomitant]
     Active Substance: METHOTREXATE
     Dosage: UNK
     Route: 065
     Dates: start: 20191227, end: 20191227
  51. MONTELUKAST [Concomitant]
     Active Substance: MONTELUKAST SODIUM
     Indication: Prophylaxis
     Dosage: 5 MG, 1X
     Route: 048
     Dates: start: 20200106, end: 20200106
  52. MONTELUKAST [Concomitant]
     Active Substance: MONTELUKAST SODIUM
     Dosage: 5 MG, 1X
     Route: 048
     Dates: start: 20191230, end: 20191230
  53. FENTANYL [Concomitant]
     Active Substance: FENTANYL
     Indication: Prophylaxis
     Dosage: UNK
     Route: 042
     Dates: start: 20191220, end: 20200206
  54. FAMOTIDINE [Concomitant]
     Active Substance: FAMOTIDINE
     Indication: Prophylaxis
     Dosage: 18 MG, 1X
     Route: 042
     Dates: start: 20200106, end: 20200106
  55. FAMOTIDINE [Concomitant]
     Active Substance: FAMOTIDINE
     Dosage: 18 MG, 1X
     Route: 042
     Dates: start: 20191230, end: 20191230
  56. FAMOTIDINE [Concomitant]
     Active Substance: FAMOTIDINE
     Dosage: 18 UNK
     Dates: start: 20191223, end: 20191223
  57. FUSIDIN [Concomitant]
     Dosage: UNK
     Route: 062
     Dates: start: 20191227, end: 20191227
  58. LIDOCAINE [Concomitant]
     Active Substance: LIDOCAINE
     Indication: Prophylaxis
     Dosage: UNK
     Route: 058
     Dates: start: 20191223, end: 20191223
  59. VOGALENE [Concomitant]
     Active Substance: METOPIMAZINE
     Dosage: UNK
     Route: 048
     Dates: start: 20200105, end: 20200226
  60. DEXAMETHASONE [Concomitant]
     Active Substance: DEXAMETHASONE
     Indication: Prophylaxis
     Dosage: UNK
     Route: 048
     Dates: start: 20191223, end: 20191223
  61. DEXAMETHASONE [Concomitant]
     Active Substance: DEXAMETHASONE
     Dosage: UNK
     Route: 048
     Dates: start: 20191230, end: 20191230
  62. DEXAMETHASONE [Concomitant]
     Active Substance: DEXAMETHASONE
     Dosage: UNK
     Route: 048
     Dates: start: 20200106, end: 20200106
  63. DEXAMETHASONE [Concomitant]
     Active Substance: DEXAMETHASONE
     Dosage: UNK
     Route: 048
     Dates: start: 20200107, end: 20200107
  64. DEXAMETHASONE [Concomitant]
     Active Substance: DEXAMETHASONE
     Dosage: UNK
     Route: 042
     Dates: start: 20200113, end: 20200113

REACTIONS (4)
  - Febrile neutropenia [Recovered/Resolved]
  - Epistaxis [Recovered/Resolved]
  - Disseminated aspergillosis [Recovered/Resolved]
  - Hepatic failure [Recovered/Resolved]

NARRATIVE: CASE EVENT DATE: 20200107
